FAERS Safety Report 21212480 (Version 1)
Quarter: 2022Q3

REPORT INFORMATION
  Report Type: Spontaneous
  Country: US (occurrence: None)
  Receive Date: 20220812
  Receipt Date: 20220812
  Transmission Date: 20221026
  Serious: No
  Sender: FDA-Public Use
  Company Number: None

PATIENT
  Age: 59 Year
  Sex: Female

DRUGS (1)
  1. SOFOSBUVIR AND VELPATASVIR [Suspect]
     Active Substance: SOFOSBUVIR\VELPATASVIR
     Indication: Hepatitis C
     Dosage: 400-100 MG DAILY ORAL?
     Route: 048
     Dates: start: 20220701

REACTIONS (4)
  - Swelling face [None]
  - Throat tightness [None]
  - Upper respiratory tract infection [None]
  - Refusal of treatment by patient [None]

NARRATIVE: CASE EVENT DATE: 20220811
